FAERS Safety Report 8780860 (Version 1)
Quarter: 2012Q4

REPORT INFORMATION
  Report Type: Report from Study
  Country: US (occurrence: US)
  Receive Date: 20120913
  Receipt Date: 20120913
  Transmission Date: 20130627
  Serious: No
  Sender: FDA-Public Use
  Company Number: US-009507513-1208USA007745

PATIENT

DRUGS (4)
  1. REBETOL [Suspect]
     Indication: HEPATITIS C
     Dosage: 1000 mg,qd
     Route: 048
     Dates: start: 20120324
  2. PEGINTERFERON ALFA-2A [Suspect]
     Indication: HEPATITIS C
     Dosage: Prefilld syringe,180 Microgram, qw
     Route: 058
     Dates: start: 20120324
  3. BOCEPREVIR [Suspect]
     Indication: HEPATITIS C
     Dosage: 3 in 1 day
     Dates: start: 20120422
  4. PROPRANOLOL HYDROCHLORIDE [Concomitant]
     Dosage: 20 mg,4-7 times a day

REACTIONS (6)
  - Heart rate increased [Unknown]
  - Dysgeusia [Unknown]
  - Red blood cell count decreased [Unknown]
  - White blood cell count decreased [Unknown]
  - Asthenia [Unknown]
  - Platelet count decreased [Unknown]
